FAERS Safety Report 18087446 (Version 1)
Quarter: 2020Q3

REPORT INFORMATION
  Report Type: Spontaneous
  Country: TR (occurrence: TR)
  Receive Date: 20200729
  Receipt Date: 20200729
  Transmission Date: 20201103
  Serious: Yes (Life-Threatening, Hospitalization, Other)
  Sender: FDA-Public Use
  Company Number: TR-SA-2020SA194920

PATIENT

DRUGS (1)
  1. CLOMIFENE CITRATE [Suspect]
     Active Substance: CLOMIPHENE
     Indication: OVULATION DISORDER
     Dosage: 50 MG, QD

REACTIONS (5)
  - Pulmonary embolism [Unknown]
  - Chest pain [Unknown]
  - Hypoxia [Unknown]
  - Hypocapnia [Unknown]
  - Sinus tachycardia [Unknown]
